FAERS Safety Report 8214852-0 (Version None)
Quarter: 2012Q1

REPORT INFORMATION
  Report Type: 
  Country: None (occurrence: None)
  Receive Date: 20120316
  Receipt Date: 20120305
  Transmission Date: 20120608
  Serious: Yes (Hospitalization)
  Sender: FDA-Public Use
  Company Number: US-ELI_LILLY_AND_COMPANY-US201202006876

PATIENT
  Sex: Female

DRUGS (10)
  1. ASPIRIN [Concomitant]
  2. VICODIN [Concomitant]
  3. FORTEO [Suspect]
     Indication: OSTEOPOROSIS
     Dosage: 20 UG, QD
     Route: 065
     Dates: start: 20120201
  4. SENNA-S                            /01035001/ [Concomitant]
  5. CALCIUM + VITAMIN D [Concomitant]
  6. PROTONIX [Concomitant]
  7. LEVOTHYROXINE SODIUM [Concomitant]
     Indication: THYROID DISORDER
     Dosage: 1 DF, QD
  8. CALCIUM [Concomitant]
  9. PROLIA [Concomitant]
     Dosage: 1 DF, UNK
     Dates: start: 20110901
  10. MIRALAX [Concomitant]

REACTIONS (6)
  - DRUG DOSE OMISSION [None]
  - PAIN [None]
  - INCORRECT PRODUCT STORAGE [None]
  - OESOPHAGEAL OBSTRUCTION [None]
  - RETCHING [None]
  - INJECTION SITE ERYTHEMA [None]
